FAERS Safety Report 4522756-X (Version None)
Quarter: 2004Q4

REPORT INFORMATION
  Report Type: 
  Country: None (occurrence: None)
  Receive Date: 20041207
  Receipt Date: 20041125
  Transmission Date: 20050328
  Serious: Yes (Life-Threatening)
  Sender: FDA-Public Use
  Company Number: A02200403066

PATIENT
  Age: 47 Year
  Sex: Male

DRUGS (6)
  1. ELOXATIN [Suspect]
     Indication: COLORECTAL CANCER
     Dosage: CUMULATIVE DOSE : 2680 MG
     Dates: start: 20040102, end: 20040102
  2. ELOXATIN [Suspect]
     Indication: METASTASES TO LIVER
     Dosage: CUMULATIVE DOSE : 2680 MG
     Dates: start: 20040102, end: 20040102
  3. CAMPTOSAR [Suspect]
     Indication: COLORECTAL CANCER
     Dosage: CUMULATIVE DOSE : 7575 MG
     Dates: start: 20040824, end: 20040824
  4. CAMPTOSAR [Suspect]
     Indication: METASTASES TO LIVER
     Dosage: CUMULATIVE DOSE : 7575 MG
     Dates: start: 20040824, end: 20040824
  5. ERBITUX - (CETUXIMAB) - SOLUTION [Suspect]
     Indication: COLORECTAL CANCER
     Dosage: 418 MG OTHER (CUMULATIVE DOSE : 8942 MG)
     Dates: start: 20040824, end: 20040824
  6. ERBITUX - (CETUXIMAB) - SOLUTION [Suspect]
     Indication: METASTASES TO LIVER
     Dosage: 418 MG OTHER (CUMULATIVE DOSE : 8942 MG)
     Dates: start: 20040824, end: 20040824

REACTIONS (13)
  - ASCITES [None]
  - DISEASE RECURRENCE [None]
  - HAEMATEMESIS [None]
  - HEPATIC FIBROSIS [None]
  - LIVER SCAN ABNORMAL [None]
  - MELAENA [None]
  - METASTASES TO LIVER [None]
  - OEDEMA PERIPHERAL [None]
  - OESOPHAGEAL VARICES HAEMORRHAGE [None]
  - PELIOSIS HEPATIS [None]
  - PLEURAL EFFUSION [None]
  - PORTAL HYPERTENSION [None]
  - VENOOCCLUSIVE LIVER DISEASE [None]
